FAERS Safety Report 11794742 (Version 1)
Quarter: 2015Q4

REPORT INFORMATION
  Report Type: Spontaneous
  Country: DE (occurrence: DE)
  Receive Date: 20151202
  Receipt Date: 20151202
  Transmission Date: 20160305
  Serious: Yes (Congenital Anomaly, Other)
  Sender: FDA-Public Use
  Company Number: DE-TEVA-611882GER

PATIENT
  Age: 1 Day
  Sex: Female
  Weight: 1.56 kg

DRUGS (6)
  1. ACTIVE CHARCOAL [Concomitant]
     Indication: DETOXIFICATION
     Dosage: 20 G/D (ONLY 3 DAYS BECAUSE SHE DID NOT TOLERATE IT)
     Route: 064
     Dates: start: 20141129, end: 20141201
  2. LODOTRA [Suspect]
     Active Substance: PREDNISONE
     Indication: RHEUMATOID ARTHRITIS
     Dosage: 5 MG/D
     Route: 064
     Dates: start: 20150424, end: 20150530
  3. ARAVA [Suspect]
     Active Substance: LEFLUNOMIDE
     Indication: RHEUMATOID ARTHRITIS
     Dosage: 20 MG/D
     Route: 064
     Dates: start: 20141004, end: 20141112
  4. FOLIO [Concomitant]
     Active Substance: FOLIC ACID
     Indication: PROPHYLAXIS OF NEURAL TUBE DEFECT
     Dosage: 0.4 MG/D
     Route: 064
  5. PREDNISOLONE. [Suspect]
     Active Substance: PREDNISOLONE
     Indication: RHEUMATOID ARTHRITIS
     Route: 064
     Dates: start: 20141004, end: 20150423
  6. COLESTYRAMINE [Concomitant]
     Active Substance: CHOLESTYRAMINE
     Indication: DETOXIFICATION
     Route: 064

REACTIONS (6)
  - Small for dates baby [Recovering/Resolving]
  - Tracheo-oesophageal fistula [Recovered/Resolved with Sequelae]
  - Oesophageal atresia [Recovered/Resolved with Sequelae]
  - Premature baby [Recovering/Resolving]
  - Foetal exposure during pregnancy [Unknown]
  - Intraventricular haemorrhage neonatal [Unknown]

NARRATIVE: CASE EVENT DATE: 20150530
